FAERS Safety Report 21194374 (Version 1)
Quarter: 2022Q3

REPORT INFORMATION
  Report Type: Spontaneous
  Country: US (occurrence: None)
  Receive Date: 20220809
  Receipt Date: 20220809
  Transmission Date: 20221027
  Serious: Yes (Other)
  Sender: FDA-Public Use
  Company Number: None

PATIENT
  Age: 41 Year
  Sex: Female
  Weight: 140.85 kg

DRUGS (6)
  1. DOXYCYCLINE [Suspect]
     Active Substance: DOXYCYCLINE
     Indication: Lyme disease
     Dosage: 42 CAPSULE(S)   TWICE A DAY?
     Route: 048
     Dates: start: 20220803, end: 20220806
  2. Valsartin 40 [Concomitant]
  3. colazapam [Concomitant]
  4. labetalol 100mg [Concomitant]
  5. ALBUTEROL [Concomitant]
     Active Substance: ALBUTEROL
  6. Ibprophen [Concomitant]

REACTIONS (5)
  - Tremor [None]
  - Eye movement disorder [None]
  - Chills [None]
  - Drug hypersensitivity [None]
  - Blood pressure increased [None]

NARRATIVE: CASE EVENT DATE: 20220806
